FAERS Safety Report 7897350-3 (Version None)
Quarter: 2011Q4

REPORT INFORMATION
  Report Type: 
  Country: None (occurrence: None)
  Receive Date: 20111107
  Receipt Date: 20111031
  Transmission Date: 20120403
  Serious: Yes (Hospitalization)
  Sender: FDA-Public Use
  Company Number: PHHY2011CA78334

PATIENT
  Sex: Male

DRUGS (7)
  1. FERROUS GLUCONATE [Concomitant]
     Dosage: 900 MG, DAILY
  2. CLONAZEPAM [Concomitant]
     Dosage: 0.5 MG, TID
  3. DIVALPROEX SODIUM [Concomitant]
     Dosage: 750 MG, QHS
  4. PROPRANOLOL [Concomitant]
     Dosage: 40 MG, DAILY
  5. ZOLEDRONOC ACID [Suspect]
     Dosage: UNK UKN, UNK
     Route: 042
  6. LITHIUM CITRATE [Concomitant]
     Dosage: 600 MG, QHS
  7. ESCITALOPRAM [Concomitant]
     Dosage: 10 MG, QD

REACTIONS (1)
  - CHOLELITHIASIS [None]
